FAERS Safety Report 23411760 (Version 1)
Quarter: 2024Q1

REPORT INFORMATION
  Report Type: Spontaneous
  Country: US (occurrence: None)
  Receive Date: 20240117
  Receipt Date: 20240117
  Transmission Date: 20240410
  Serious: Yes (Death)
  Sender: FDA-Public Use
  Company Number: None

PATIENT
  Age: 80 Year
  Sex: Male

DRUGS (1)
  1. PROCRIT [Suspect]
     Active Substance: ERYTHROPOIETIN
     Indication: Nephrogenic anaemia
     Dosage: 12000 UNITS ONCE A WEEK SUBCUTANEOUS
     Route: 058
     Dates: start: 202307

REACTIONS (1)
  - Death [None]

NARRATIVE: CASE EVENT DATE: 20240105
